FAERS Safety Report 8609780-2 (Version None)
Quarter: 2012Q3

REPORT INFORMATION
  Report Type: 
  Country: None (occurrence: None)
  Receive Date: 20120821
  Receipt Date: 20120815
  Transmission Date: 20120928
  Serious: Yes (Hospitalization)
  Sender: FDA-Public Use
  Company Number: US-PFIZER INC-2012164943

PATIENT
  Sex: Male

DRUGS (1)
  1. GLUCOTROL XL [Suspect]
     Dosage: UNK

REACTIONS (1)
  - GASTROINTESTINAL DISORDER [None]
